FAERS Safety Report 5476548-8 (Version None)
Quarter: 2007Q3

REPORT INFORMATION
  Report Type: 
  Country: None (occurrence: None)
  Receive Date: 20070926
  Receipt Date: 20070430
  Transmission Date: 20080115
  Serious: Yes (Other)
  Sender: FDA-Public Use
  Company Number: 2007035014

PATIENT
  Age: 51 Year
  Sex: Female
  Weight: 82 kg

DRUGS (2)
  1. ZYRTEC [Suspect]
     Indication: MULTIPLE ALLERGIES
     Dosage: 10 MG (10 MG, 1 IN 1 D)
     Dates: start: 20020101
  2. PREMPRO [Concomitant]

REACTIONS (3)
  - DRY EYE [None]
  - KERATOCONJUNCTIVITIS SICCA [None]
  - VERTIGO [None]
